FAERS Safety Report 8219163-5 (Version None)
Quarter: 2012Q1

REPORT INFORMATION
  Report Type: 
  Country: None (occurrence: None)
  Receive Date: 20120319
  Receipt Date: 20120313
  Transmission Date: 20120608
  Serious: No
  Sender: FDA-Public Use
  Company Number: US-PFIZER INC-2012023366

PATIENT
  Sex: Female
  Weight: 58.957 kg

DRUGS (4)
  1. CYTOMEL [Suspect]
     Dosage: 6.25 MCG, DAILY
     Route: 048
     Dates: start: 20120117, end: 20120119
  2. SYNTHROID [Concomitant]
     Indication: HYPOTHYROIDISM
     Dosage: 50 UG, 1X/DAY
  3. CYTOMEL [Suspect]
     Dosage: 6.25 UG, 1X/DAY
     Route: 048
  4. CYTOMEL [Suspect]
     Indication: HYPOTHYROIDISM
     Dosage: 6.25 UG, DAILY
     Route: 048
     Dates: start: 20050729

REACTIONS (3)
  - FEELING ABNORMAL [None]
  - TREMOR [None]
  - DIZZINESS [None]
